FAERS Safety Report 17930176 (Version 1)
Quarter: 2020Q2

REPORT INFORMATION
  Report Type: Spontaneous
  Country: US (occurrence: US)
  Receive Date: 20200623
  Receipt Date: 20200623
  Transmission Date: 20200714
  Serious: Yes (Other)
  Sender: FDA-Public Use
  Company Number: US-LUNDBECK-DKLU3017672

PATIENT
  Age: 25 Year
  Sex: Female

DRUGS (1)
  1. VYEPTI [Suspect]
     Active Substance: EPTINEZUMAB-JJMR
     Indication: MIGRAINE
     Route: 042
     Dates: start: 20200518

REACTIONS (4)
  - Blood loss anaemia [Not Recovered/Not Resolved]
  - Haemorrhage [Unknown]
  - Fatigue [Not Recovered/Not Resolved]
  - Stress urinary incontinence [Unknown]
